FAERS Safety Report 7366809-X (Version None)
Quarter: 2011Q1

REPORT INFORMATION
  Report Type: 
  Country: None (occurrence: None)
  Receive Date: 20110322
  Receipt Date: 20110314
  Transmission Date: 20110831
  Serious: Yes (Hospitalization)
  Sender: FDA-Public Use
  Company Number: GB-ROCHE-765969

PATIENT

DRUGS (4)
  1. OXALIPLATIN [Suspect]
     Route: 065
  2. 5-FLUOROURACIL [Suspect]
     Route: 065
  3. FOLINIC ACID [Suspect]
     Route: 065
  4. BEVACIZUMAB [Suspect]
     Route: 065
     Dates: start: 20100823

REACTIONS (1)
  - PYREXIA [None]
